FAERS Safety Report 4320641-X (Version None)
Quarter: 2004Q1

REPORT INFORMATION
  Report Type: 
  Country: None (occurrence: None)
  Receive Date: 20040318
  Receipt Date: 20040308
  Transmission Date: 20041129
  Serious: Yes (Hospitalization)
  Sender: FDA-Public Use
  Company Number: GB-JNJFOC-20040301755

PATIENT
  Age: 49 Year
  Sex: Female

DRUGS (9)
  1. REMICADE [Suspect]
     Indication: RHEUMATOID ARTHRITIS
     Dosage: 220 MG INTRAVENOUS
     Route: 042
     Dates: start: 20030213
  2. METHOTREXATE [Concomitant]
  3. FOLIC ACID [Concomitant]
  4. CYCLOSPORINE [Concomitant]
  5. PREDNISOLONE [Concomitant]
  6. IBUPROFEN [Concomitant]
  7. CALICHEW (LEKOVIT CA) [Concomitant]
  8. FOSAMAX (ALENDRONATE CALCIUM) [Concomitant]
  9. TRAMADOL HCL [Concomitant]

REACTIONS (3)
  - INFECTION [None]
  - JOINT STIFFNESS [None]
  - OEDEMA PERIPHERAL [None]
